FAERS Safety Report 8612509-5 (Version None)
Quarter: 2012Q3

REPORT INFORMATION
  Report Type: 
  Country: None (occurrence: None)
  Receive Date: 20120822
  Receipt Date: 20120820
  Transmission Date: 20120928
  Serious: Yes (Death, Other)
  Sender: FDA-Public Use
  Company Number: PHHY2012US071770

PATIENT
  Age: 70 Year
  Sex: Male

DRUGS (3)
  1. DIAZEPAM [Concomitant]
     Indication: MYOCLONUS
  2. AMANTADINE HCL [Suspect]
  3. BROMOCRIPTINE MESYLATE [Concomitant]

REACTIONS (2)
  - RESPIRATORY DISTRESS [None]
  - MULTI-ORGAN FAILURE [None]
